FAERS Safety Report 24459792 (Version 1)
Quarter: 2024Q4

REPORT INFORMATION
  Report Type: Report from Study
  Country: US (occurrence: US)
  Receive Date: 20241018
  Receipt Date: 20241018
  Transmission Date: 20250115
  Serious: No
  Sender: ROCHE
  Company Number: US-ROCHE-3541650

PATIENT
  Age: 52 Year
  Sex: Female

DRUGS (2)
  1. RITUXAN [Suspect]
     Active Substance: RITUXIMAB
     Indication: Thrombotic microangiopathy
     Dosage: INFUSE 1000MG INTRAVENOUSLY ON DAY(S) 0 AND DAY(S) 14 EVERY 6 MONTH(S)
     Route: 041
  2. RITUXAN [Suspect]
     Active Substance: RITUXIMAB
     Indication: Arteritis

REACTIONS (2)
  - Asthenia [Unknown]
  - Off label use [Unknown]
